FAERS Safety Report 23596833 (Version 1)
Quarter: 2024Q1

REPORT INFORMATION
  Report Type: Spontaneous
  Country: PT (occurrence: PT)
  Receive Date: 20240305
  Receipt Date: 20240305
  Transmission Date: 20240410
  Serious: Yes (Other)
  Sender: FDA-Public Use
  Company Number: None

PATIENT
  Age: 55 Year
  Sex: Male
  Weight: 100 kg

DRUGS (9)
  1. QUETIAPINE [Suspect]
     Active Substance: QUETIAPINE
     Indication: Delirium
     Dosage: QUETIAPINA
     Route: 048
     Dates: start: 20240105, end: 20240108
  2. DEXMEDETOMIDINE [Suspect]
     Active Substance: DEXMEDETOMIDINE
     Indication: Delirium
     Dosage: 1.4MCG/KG/HOUR??DEXMEDETOMIDINA
     Route: 042
     Dates: start: 20240106, end: 20240108
  3. LEVOMEPROMAZINE [Suspect]
     Active Substance: LEVOMEPROMAZINE
     Indication: Delirium
     Dosage: LEVOMEPROMAZINA/ 25MG X 3DAYS
     Route: 042
     Dates: start: 20240107, end: 20240108
  4. AMOXICILLIN\CLAVULANIC ACID [Concomitant]
     Active Substance: AMOXICILLIN\CLAVULANIC ACID
     Indication: Product used for unknown indication
     Dosage: AMOXICILINA + ?CIDO CLAVUL?NICO??POWDER FOR SOLUTION FOR INJECTION OR INFUSION
     Route: 042
  5. FENTANYL [Concomitant]
     Active Substance: FENTANYL\FENTANYL CITRATE
     Indication: Product used for unknown indication
     Dosage: FENTANILO??POWDER FOR SOLUTION FOR INJECTION OR INFUSION
     Route: 042
  6. AMIODARONE [Concomitant]
     Active Substance: AMIODARONE
     Indication: Product used for unknown indication
     Dosage: AMIODARONA?POWDER FOR SOLUTION FOR INJECTION OR INFUSION
     Route: 042
  7. POTASSIUM PHOSPHATE, MONOBASIC [Concomitant]
     Active Substance: POTASSIUM PHOSPHATE, MONOBASIC
     Indication: Product used for unknown indication
     Dosage: FOSFATO MONOPOT?SSICO
     Route: 042
  8. FUROSEMIDE [Concomitant]
     Active Substance: FUROSEMIDE
     Indication: Product used for unknown indication
     Dosage: FUROSEMIDA
     Route: 042
  9. INSULIN NOS [Concomitant]
     Active Substance: INSULIN NOS
     Indication: Product used for unknown indication
     Dosage: INSULINA
     Route: 058

REACTIONS (1)
  - Hyperthermia [Recovered/Resolved]

NARRATIVE: CASE EVENT DATE: 20240108
